FAERS Safety Report 15710814 (Version 2)
Quarter: 2019Q2

REPORT INFORMATION
  Report Type: Spontaneous
  Country: US (occurrence: US)
  Receive Date: 20181211
  Receipt Date: 20190513
  Transmission Date: 20190711
  Serious: Yes (Other)
  Sender: FDA-Public Use
  Company Number: US-SA-2018SA331683

PATIENT
  Age: 58 Year
  Sex: Female
  Weight: 100.24 kg

DRUGS (5)
  1. NEOSAR [Concomitant]
     Active Substance: CYCLOPHOSPHAMIDE
  2. TAXOTERE [Suspect]
     Active Substance: DOCETAXEL
     Indication: BREAST CANCER FEMALE
     Dosage: 60 MG, Q3W
     Route: 042
     Dates: start: 20050728, end: 20050728
  3. TAXOL [Concomitant]
     Active Substance: PACLITAXEL
  4. DOXORUBICIN [Concomitant]
     Active Substance: DOXORUBICIN
  5. TAXOTERE [Suspect]
     Active Substance: DOCETAXEL
     Dosage: 60 MG, Q3W
     Route: 042
     Dates: start: 20051006, end: 20051006

REACTIONS (1)
  - Alopecia [Recovering/Resolving]

NARRATIVE: CASE EVENT DATE: 20060406
